FAERS Safety Report 4360255-9 (Version None)
Quarter: 2004Q2

REPORT INFORMATION
  Report Type: 
  Country: None (occurrence: None)
  Receive Date: 20040519
  Receipt Date: 20040511
  Transmission Date: 20050107
  Serious: Yes (Life-Threatening)
  Sender: FDA-Public Use
  Company Number: 200411895FR

PATIENT
  Age: 76 Year
  Sex: Female

DRUGS (6)
  1. AMAREL [Suspect]
     Indication: DIABETES MELLITUS NON-INSULIN-DEPENDENT
     Route: 048
     Dates: end: 20040224
  2. RIFADIN [Suspect]
     Indication: PNEUMONIA
     Route: 048
     Dates: start: 20040217, end: 20040224
  3. PIRILENE [Suspect]
     Indication: PNEUMONIA
     Route: 048
     Dates: start: 20040217, end: 20040224
  4. RIMIFON [Suspect]
     Indication: PNEUMONIA
     Route: 048
     Dates: start: 20040217, end: 20040224
  5. METFORMIN HCL [Suspect]
     Indication: DIABETES MELLITUS NON-INSULIN-DEPENDENT
     Route: 048
     Dates: start: 19900615, end: 20040224
  6. MYAMBUTOL [Suspect]
     Indication: PNEUMONIA
     Route: 048
     Dates: start: 20040217, end: 20040224

REACTIONS (9)
  - ACID FAST BACILLI INFECTION [None]
  - ASTHENIA [None]
  - CYTOLYTIC HEPATITIS [None]
  - DRUG INTOLERANCE [None]
  - GASTROINTESTINAL DISORDER [None]
  - HEADACHE [None]
  - PALLOR [None]
  - PNEUMONIA [None]
  - RENAL FAILURE ACUTE [None]
